FAERS Safety Report 15337175 (Version 1)
Quarter: 2018Q3

REPORT INFORMATION
  Report Type: Spontaneous
  Country: US (occurrence: US)
  Receive Date: 20180831
  Receipt Date: 20180831
  Transmission Date: 20181010
  Serious: Yes (Other)
  Sender: FDA-Public Use
  Company Number: US-PHARMING-PHAUS2018000565

PATIENT

DRUGS (25)
  1. GABAPENTIN. [Concomitant]
     Active Substance: GABAPENTIN
  2. NAPROXEN. [Concomitant]
     Active Substance: NAPROXEN
  3. STERILE WATER [Concomitant]
     Active Substance: WATER
  4. POTASSIUM CHLORIDE. [Concomitant]
     Active Substance: POTASSIUM CHLORIDE
  5. PRAVASTATIN. [Concomitant]
     Active Substance: PRAVASTATIN
  6. RANITIDINE. [Concomitant]
     Active Substance: RANITIDINE
  7. IBUPROFEN. [Concomitant]
     Active Substance: IBUPROFEN
  8. SODIUM CHLORIDE. [Concomitant]
     Active Substance: SODIUM CHLORIDE
  9. TYLENOL EXTRA STRENGTH [Concomitant]
     Active Substance: ACETAMINOPHEN
  10. FOLIC ACID. [Concomitant]
     Active Substance: FOLIC ACID
  11. RUCONEST [Suspect]
     Active Substance: HUMAN C1-ESTERASE INHIBITOR
     Indication: HEREDITARY ANGIOEDEMA
     Dosage: 4200 IU, AS NEEDED
     Route: 042
     Dates: start: 20171101
  12. METHOTREXATE. [Concomitant]
     Active Substance: METHOTREXATE
  13. SYNTHROID [Concomitant]
     Active Substance: LEVOTHYROXINE SODIUM
  14. ASPIRIN. [Concomitant]
     Active Substance: ASPIRIN
  15. ZOLPIDEM [Concomitant]
     Active Substance: ZOLPIDEM\ZOLPIDEM TARTRATE
  16. CALCIUM [Concomitant]
     Active Substance: CALCIUM
  17. CALCIUM +D3 [Concomitant]
     Active Substance: CALCIUM\CHOLECALCIFEROL
  18. BACLOFEN. [Concomitant]
     Active Substance: BACLOFEN
  19. LASIX [Concomitant]
     Active Substance: FUROSEMIDE
  20. VITAMIN B12 [Concomitant]
     Active Substance: CYANOCOBALAMIN
  21. MULTIVITAMINS [Concomitant]
     Active Substance: VITAMINS
  22. EPINEPHRINE. [Concomitant]
     Active Substance: EPINEPHRINE
  23. METOPROLOL. [Concomitant]
     Active Substance: METOPROLOL
  24. BENADRYL [Concomitant]
     Active Substance: DIPHENHYDRAMINE HYDROCHLORIDE
  25. PERCOCET [Concomitant]
     Active Substance: ACETAMINOPHEN\OXYCODONE HYDROCHLORIDE

REACTIONS (1)
  - Hereditary angioedema [Unknown]
